FAERS Safety Report 8918915 (Version 1)
Quarter: 2012Q4

REPORT INFORMATION
  Report Type: 
  Country: FR (occurrence: FR)
  Receive Date: 20121121
  Receipt Date: 20121121
  Transmission Date: 20130627
  Serious: Yes (Hospitalization)
  Sender: FDA-Public Use
  Company Number: FR-ASTRAZENECA-2012SE86535

PATIENT
  Age: 19645 Day
  Sex: Male

DRUGS (2)
  1. MOPRAL [Suspect]
     Route: 048
     Dates: start: 20120823, end: 20120921
  2. ELISOR [Suspect]
     Indication: HYPERCHOLESTEROLAEMIA
     Route: 048
     Dates: start: 20120901, end: 20120903

REACTIONS (1)
  - Lichenoid keratosis [Recovering/Resolving]
